FAERS Safety Report 8547384-0 (Version None)
Quarter: 2012Q3

REPORT INFORMATION
  Report Type: 
  Country: None (occurrence: None)
  Receive Date: 20120727
  Receipt Date: 20120406
  Transmission Date: 20120928
  Serious: No
  Sender: FDA-Public Use
  Company Number: US-ASTRAZENECA-2012SE22983

PATIENT
  Age: 40 Year
  Sex: Female
  Weight: 73.5 kg

DRUGS (4)
  1. LAMICTAL [Suspect]
     Route: 065
  2. LAMICTAL [Suspect]
     Route: 065
  3. SEROQUEL [Suspect]
     Route: 048
  4. SEROQUEL [Suspect]
     Indication: BIPOLAR I DISORDER
     Route: 048

REACTIONS (3)
  - MIGRAINE [None]
  - RASH [None]
  - EYE HAEMORRHAGE [None]
